FAERS Safety Report 8923112 (Version 1)
Quarter: 2012Q4

REPORT INFORMATION
  Report Type: 
  Country: BR (occurrence: BR)
  Receive Date: 20121124
  Receipt Date: 20121124
  Transmission Date: 20130627
  Serious: Yes (Other)
  Sender: FDA-Public Use
  Company Number: PHHY2012BR107298

PATIENT
  Sex: Male

DRUGS (3)
  1. RITALIN LA [Suspect]
     Indication: ATTENTION DEFICIT/HYPERACTIVITY DISORDER
     Dosage: 10 mg, daily
  2. RITALIN LA [Suspect]
     Dosage: 30 mg, UNK
  3. RITALIN LA [Suspect]
     Dosage: 10 mg, UNK

REACTIONS (1)
  - Arrhythmia [Recovering/Resolving]
